FAERS Safety Report 5409612-X (Version None)
Quarter: 2007Q3

REPORT INFORMATION
  Report Type: 
  Country: None (occurrence: None)
  Receive Date: 20070807
  Receipt Date: 20070807
  Transmission Date: 20080115
  Serious: Yes (Hospitalization)
  Sender: FDA-Public Use
  Company Number: None

PATIENT
  Age: 38 Year
  Sex: Female
  Weight: 67.586 kg

DRUGS (2)
  1. EPIRUBICIN [Suspect]
     Indication: BREAST CANCER
     Dosage: 149MG Q3WK IV BOLUS
     Route: 040
     Dates: start: 20070726, end: 20070803
  2. CYCLOPHOSPHAMIDE [Suspect]
     Indication: BREAST CANCER
     Dosage: 990MG Q3WK IV BOLUS
     Route: 040
     Dates: start: 20070726, end: 20070803

REACTIONS (2)
  - FEBRILE NEUTROPENIA [None]
  - JUGULAR VEIN THROMBOSIS [None]
